FAERS Safety Report 8585419-X (Version None)
Quarter: 2012Q3

REPORT INFORMATION
  Report Type: 
  Country: None (occurrence: None)
  Receive Date: 20120810
  Receipt Date: 20120808
  Transmission Date: 20120928
  Serious: No
  Sender: FDA-Public Use
  Company Number: US-PFIZER INC-2012178728

PATIENT
  Age: 9 Year
  Sex: Male

DRUGS (1)
  1. GENOTROPIN [Suspect]
     Indication: BODY HEIGHT BELOW NORMAL
     Dosage: 1.1MG DAILY BY INJECTING 1MG EVERY OTHER DAY ALTERNATING WITH 1.2MG EVERY OTHER DAY
     Route: 058

REACTIONS (1)
  - INJECTION SITE PAIN [None]
